FAERS Safety Report 16662724 (Version 1)
Quarter: 2019Q3

REPORT INFORMATION
  Report Type: Spontaneous
  Country: PL (occurrence: PL)
  Receive Date: 20190802
  Receipt Date: 20190802
  Transmission Date: 20191004
  Serious: No
  Sender: FDA-Public Use
  Company Number: PL-IPSEN-CABO-18017526

PATIENT
  Age: 63 Year
  Sex: Male

DRUGS (2)
  1. CABOMETYX [Suspect]
     Active Substance: CABOZANTINIB S-MALATE
     Indication: CLEAR CELL RENAL CELL CARCINOMA
     Dosage: 60 MG, QD
  2. CABOMETYX [Suspect]
     Active Substance: CABOZANTINIB S-MALATE
     Dosage: 30 MG, QD (DIVIDED 60 MG INTO TWO PARTS)

REACTIONS (13)
  - Weight decreased [Unknown]
  - Hypertension [Unknown]
  - Taste disorder [Unknown]
  - Mucosal inflammation [Unknown]
  - Blood urea increased [Unknown]
  - Hair colour changes [Unknown]
  - Diarrhoea [Unknown]
  - Dyspepsia [Unknown]
  - Vomiting [Unknown]
  - Wrong technique in product usage process [Unknown]
  - Blood creatinine increased [Unknown]
  - Nausea [Unknown]
  - Decreased appetite [Unknown]
